FAERS Safety Report 8694359 (Version 2)
Quarter: 2012Q4

REPORT INFORMATION
  Report Type: Report from Study
  Country: ES (occurrence: ES)
  Receive Date: 20120731
  Receipt Date: 20120907
  Transmission Date: 20130627
  Serious: Yes (Hospitalization)
  Sender: FDA-Public Use
  Company Number: ES-ROCHE-1089360

PATIENT
  Age: 52 Year
  Sex: Male

DRUGS (5)
  1. ZELBORAF [Suspect]
     Indication: MALIGNANT MELANOMA
     Dosage: most recent dose: 17/Jul/2012
     Route: 048
     Dates: start: 20120224, end: 20120717
  2. ZELBORAF [Suspect]
     Route: 065
     Dates: start: 20120801
  3. DICLOFENAC [Concomitant]
  4. MICARDIS [Concomitant]
  5. ATORVASTATINA [Concomitant]

REACTIONS (1)
  - Myocardial infarction [Recovered/Resolved]
